FAERS Safety Report 5312609-1 (Version None)
Quarter: 2007Q2

REPORT INFORMATION
  Report Type: 
  Country: None (occurrence: None)
  Receive Date: 20070430
  Receipt Date: 20070423
  Transmission Date: 20071010
  Serious: No
  Sender: FDA-Public Use
  Company Number: 2006UW25602

PATIENT
  Age: 86 Year
  Sex: Female
  Weight: 61.7 kg

DRUGS (8)
  1. NEXIUM [Suspect]
     Indication: GASTROOESOPHAGEAL REFLUX DISEASE
     Route: 048
     Dates: start: 20050101, end: 20061118
  2. NEXIUM [Suspect]
     Route: 048
     Dates: start: 20050101, end: 20061118
  3. NEXIUM [Suspect]
     Route: 048
     Dates: start: 20060101
  4. NEXIUM [Suspect]
     Route: 048
     Dates: start: 20060101
  5. INDERAL [Concomitant]
  6. ZOLOFT [Concomitant]
  7. GAS-X [Concomitant]
  8. TUMS [Concomitant]

REACTIONS (2)
  - COUGH [None]
  - INCREASED UPPER AIRWAY SECRETION [None]
